FAERS Safety Report 10031300 (Version 1)
Quarter: 2014Q1

REPORT INFORMATION
  Report Type: Report from Study
  Country: CO (occurrence: CO)
  Receive Date: 20140324
  Receipt Date: 20140324
  Transmission Date: 20141002
  Serious: Yes (Death)
  Sender: FDA-Public Use
  Company Number: CO-BRISTOL-MYERS SQUIBB COMPANY-20555900

PATIENT
  Age: 29 Year
  Sex: Female

DRUGS (1)
  1. SPRYCEL [Suspect]
     Dosage: INT 28JAN14
     Route: 048
     Dates: start: 20131029

REACTIONS (1)
  - Death [Fatal]
